FAERS Safety Report 21108232 (Version 1)
Quarter: 2022Q3

REPORT INFORMATION
  Report Type: Spontaneous
  Country: US (occurrence: US)
  Receive Date: 20220720
  Receipt Date: 20220720
  Transmission Date: 20221027
  Serious: No
  Sender: FDA-Public Use
  Company Number: US-SA-SAC20220718000175

PATIENT
  Sex: Female
  Weight: 67.13 kg

DRUGS (1)
  1. AUBAGIO [Suspect]
     Active Substance: TERIFLUNOMIDE
     Indication: Multiple sclerosis
     Dosage: 1 TABLET BY MOUTH FREQUENCY: DAILY
     Route: 048
     Dates: start: 201604

REACTIONS (1)
  - Alopecia [Unknown]
